FAERS Safety Report 17486722 (Version 1)
Quarter: 2020Q1

REPORT INFORMATION
  Report Type: Spontaneous
  Country: IT (occurrence: IT)
  Receive Date: 20200303
  Receipt Date: 20200303
  Transmission Date: 20200409
  Serious: Yes (Other)
  Sender: FDA-Public Use
  Company Number: IT-BRISTOL-MYERS SQUIBB COMPANY-BMS-2019-114666

PATIENT
  Age: 75 Year
  Sex: Female
  Weight: 65 kg

DRUGS (2)
  1. NIVOLUMAB [Suspect]
     Active Substance: NIVOLUMAB
     Indication: LUNG NEOPLASM MALIGNANT
     Dosage: 3 MILLIGRAM/KILOGRAM, 195 MILLIGRAM (1 CYCLICAL) Q2WK
     Route: 042
     Dates: start: 20171128, end: 20180921
  2. LANSOPRAZOLE. [Concomitant]
     Active Substance: LANSOPRAZOLE
     Indication: GASTROINTESTINAL DISORDER
     Dosage: 1 DOSAGE FORM
     Route: 048
     Dates: start: 201501

REACTIONS (3)
  - Gait disturbance [Recovered/Resolved]
  - Diarrhoea [Recovered/Resolved]
  - Polyneuropathy [Unknown]

NARRATIVE: CASE EVENT DATE: 201804
